FAERS Safety Report 10953305 (Version 4)
Quarter: 2015Q4

REPORT INFORMATION
  Report Type: Spontaneous
  Country: US (occurrence: US)
  Receive Date: 20150325
  Receipt Date: 20151007
  Transmission Date: 20160304
  Serious: No
  Sender: FDA-Public Use
  Company Number: US-PFIZER INC-2015101137

PATIENT
  Age: 48 Year
  Sex: Male

DRUGS (6)
  1. SUTENT [Suspect]
     Active Substance: SUNITINIB MALATE
     Dosage: 50 MG, CYCLIC (2 WEEKS ON/1 WEEK OFF )
     Dates: end: 20150817
  2. METFORMIN [Concomitant]
     Active Substance: METFORMIN HYDROCHLORIDE
     Dosage: UNK
  3. SUTENT [Suspect]
     Active Substance: SUNITINIB MALATE
     Indication: METASTATIC RENAL CELL CARCINOMA
     Dosage: 50 MG, CYCLIC (28 DAYS ON AND 14 OFF)
     Dates: start: 20140815
  4. BYSTOLIC [Concomitant]
     Active Substance: NEBIVOLOL HYDROCHLORIDE
     Dosage: UNK
  5. TRIBENZOR [Concomitant]
     Active Substance: AMLODIPINE BESYLATE\HYDROCHLOROTHIAZIDE\OLMESARTAN MEDOXOMIL
     Dosage: UNK
  6. NYSTATIN. [Concomitant]
     Active Substance: NYSTATIN
     Dosage: UNK

REACTIONS (11)
  - Disease progression [Unknown]
  - Blood pressure increased [Unknown]
  - Genital pain [Unknown]
  - Dysgeusia [Unknown]
  - Diarrhoea [Unknown]
  - Metastatic renal cell carcinoma [Unknown]
  - Glossodynia [Unknown]
  - Blood glucose increased [Unknown]
  - Oral pain [Unknown]
  - Pyrexia [Recovered/Resolved]
  - Dry skin [Unknown]

NARRATIVE: CASE EVENT DATE: 201508
